FAERS Safety Report 13515796 (Version 1)
Quarter: 2017Q2

REPORT INFORMATION
  Report Type: Spontaneous
  Country: AT (occurrence: AT)
  Receive Date: 20170504
  Receipt Date: 20170504
  Transmission Date: 20170830
  Serious: Yes (Hospitalization, Other)
  Sender: FDA-Public Use
  Company Number: AT-009507513-1703AUT012304

PATIENT
  Age: 75 Year
  Sex: Male
  Weight: 74 kg

DRUGS (2)
  1. KEYTRUDA [Suspect]
     Active Substance: PEMBROLIZUMAB
     Dosage: 50 MG, 2 MG/KG BODY WEIGHT, IN 3 WEEKS INTERVALS
     Dates: start: 20170420
  2. KEYTRUDA [Suspect]
     Active Substance: PEMBROLIZUMAB
     Indication: ADENOCARCINOMA
     Dosage: 50 MG, 2 MG/KG BODY WEIGHT, IN 3 WEEKS INTERVALS
     Dates: start: 20170315

REACTIONS (3)
  - Encephalitis [Recovered/Resolved]
  - Off label use [Unknown]
  - Rash [Unknown]

NARRATIVE: CASE EVENT DATE: 2017
